FAERS Safety Report 24033795 (Version 2)
Quarter: 2024Q3

REPORT INFORMATION
  Report Type: Spontaneous
  Country: GB (occurrence: GB)
  Receive Date: 20240701
  Receipt Date: 20240712
  Transmission Date: 20241017
  Serious: Yes (Death, Hospitalization)
  Sender: TEVA
  Company Number: GB-TEVA-VS-3214906

PATIENT
  Sex: Male

DRUGS (1)
  1. QUININE [Suspect]
     Active Substance: QUININE
     Indication: Product used for unknown indication
     Dosage: ACCIDENTALLY, INGESTED 6 QUININE TABLETS (ACCIDENTAL QUININE OVERDOSE)
     Route: 048

REACTIONS (2)
  - Cinchonism [Fatal]
  - Accidental overdose [Fatal]
